FAERS Safety Report 4910582-9 (Version None)
Quarter: 2006Q1

REPORT INFORMATION
  Report Type: 
  Country: None (occurrence: None)
  Receive Date: 20060214
  Receipt Date: 20050821
  Transmission Date: 20060701
  Serious: Yes (Other)
  Sender: FDA-Public Use
  Company Number: PHEH2005US09357

PATIENT
  Age: 61 Year
  Sex: Male
  Weight: 64.852 kg

DRUGS (3)
  1. SANDOSTATIN LAR [Suspect]
     Indication: CARCINOID SYNDROME
     Dosage: 20 MG, QMO
     Dates: start: 20050901
  2. PAXIL [Concomitant]
  3. ACTIGALL [Concomitant]

REACTIONS (3)
  - INJECTION SITE PAIN [None]
  - NIGHT BLINDNESS [None]
  - OPHTHALMOLOGICAL EXAMINATION NORMAL [None]
